FAERS Safety Report 15821288 (Version 1)
Quarter: 2019Q1

REPORT INFORMATION
  Report Type: Spontaneous
  Country: US (occurrence: US)
  Receive Date: 20190114
  Receipt Date: 20190114
  Transmission Date: 20190417
  Serious: Yes (Other)
  Sender: FDA-Public Use
  Company Number: US-PFIZER INC-2019016404

PATIENT
  Sex: Female

DRUGS (1)
  1. LYRICA [Suspect]
     Active Substance: PREGABALIN
     Dosage: 300 MG, DAILY(100 MG AM 200MG PM/QUANTITY 60/ DAY SUPPLY 30)

REACTIONS (2)
  - Fibromyalgia [Unknown]
  - Carpal tunnel syndrome [Unknown]
